FAERS Safety Report 12931103 (Version 1)
Quarter: 2016Q4

REPORT INFORMATION
  Report Type: Spontaneous
  Country: US (occurrence: US)
  Receive Date: 20161110
  Receipt Date: 20161110
  Transmission Date: 20170207
  Serious: No
  Sender: FDA-Public Use
  Company Number: US-JAZZ-2016-US-017882

PATIENT
  Age: 42 Year
  Sex: Female

DRUGS (35)
  1. XYREM [Suspect]
     Active Substance: SODIUM OXYBATE
     Dosage: 4.5 G, BID
     Route: 048
     Dates: start: 201206
  2. MAGNESIUM OXIDE. [Concomitant]
     Active Substance: MAGNESIUM OXIDE
  3. TYLENOL [Concomitant]
     Active Substance: ACETAMINOPHEN
  4. NORCO [Concomitant]
     Active Substance: ACETAMINOPHEN\HYDROCODONE BITARTRATE
  5. NUVIGIL [Concomitant]
     Active Substance: ARMODAFINIL
  6. TRAMADOL HCL [Concomitant]
     Active Substance: TRAMADOL HYDROCHLORIDE
  7. AMOXICILLIN. [Concomitant]
     Active Substance: AMOXICILLIN
  8. TECFIDERA [Concomitant]
     Active Substance: DIMETHYL FUMARATE
  9. BIOTIN [Concomitant]
     Active Substance: BIOTIN
  10. TURMERIC [Concomitant]
     Active Substance: TURMERIC
  11. GABAPENTIN. [Concomitant]
     Active Substance: GABAPENTIN
  12. CLINDAMYCIN HYDROCHLORIDE. [Concomitant]
     Active Substance: CLINDAMYCIN HYDROCHLORIDE
  13. CINNAMON. [Concomitant]
     Active Substance: CINNAMON
  14. RITALIN [Concomitant]
     Active Substance: METHYLPHENIDATE HYDROCHLORIDE
  15. TRIAMCINOLONE [Concomitant]
     Active Substance: TRIAMCINOLONE
  16. BYSTOLIC [Concomitant]
     Active Substance: NEBIVOLOL HYDROCHLORIDE
  17. ALIGN [Concomitant]
     Active Substance: BIFIDOBACTERIUM LONGUM SUBSP. INFANTIS
  18. ADVIL [Concomitant]
     Active Substance: IBUPROFEN
  19. HALCION [Concomitant]
     Active Substance: TRIAZOLAM
  20. BACLOFEN. [Concomitant]
     Active Substance: BACLOFEN
  21. DIPHENHYDRAMINE. [Concomitant]
     Active Substance: DIPHENHYDRAMINE
  22. IRON [Concomitant]
     Active Substance: IRON
  23. LOMOTIL [Concomitant]
     Active Substance: ATROPINE SULFATE\DIPHENOXYLATE HYDROCHLORIDE
  24. CLONAZEPAM. [Suspect]
     Active Substance: CLONAZEPAM
     Indication: PRODUCT USED FOR UNKNOWN INDICATION
  25. BETASERON [Concomitant]
     Active Substance: INTERFERON BETA-1B
  26. GINGER. [Concomitant]
     Active Substance: GINGER
  27. MULTIVITAMIN [Concomitant]
     Active Substance: VITAMINS
  28. DEXILANT [Concomitant]
     Active Substance: DEXLANSOPRAZOLE
  29. HYDROXYZINE HCL [Concomitant]
     Active Substance: HYDROXYZINE HYDROCHLORIDE
  30. PRISTIQ EXTENDED-RELEASE [Concomitant]
     Active Substance: DESVENLAFAXINE SUCCINATE
  31. XYREM [Suspect]
     Active Substance: SODIUM OXYBATE
     Indication: NARCOLEPSY
     Dosage: 2.25 G, BID
     Route: 048
     Dates: start: 201202, end: 201202
  32. XYREM [Suspect]
     Active Substance: SODIUM OXYBATE
     Indication: CATAPLEXY
     Dosage: DOSE ADJUSTMENTS
     Route: 048
     Dates: start: 201202, end: 201206
  33. COUMADIN [Concomitant]
     Active Substance: WARFARIN SODIUM
  34. XARELTO [Concomitant]
     Active Substance: RIVAROXABAN
  35. MILK THISTLE [Concomitant]
     Active Substance: MILK THISTLE

REACTIONS (4)
  - Therapeutic response unexpected [Unknown]
  - Dental caries [Unknown]
  - Dry mouth [Unknown]
  - Pre-existing condition improved [Unknown]

NARRATIVE: CASE EVENT DATE: 20160913
